FAERS Safety Report 8067081-8 (Version None)
Quarter: 2012Q1

REPORT INFORMATION
  Report Type: 
  Country: None (occurrence: None)
  Receive Date: 20120124
  Receipt Date: 20110209
  Transmission Date: 20120608
  Serious: Yes (Hospitalization)
  Sender: FDA-Public Use
  Company Number: DE-PFIZER INC-2006040031

PATIENT
  Age: 57 Year
  Sex: Male
  Weight: 64 kg

DRUGS (8)
  1. DRONABINOL [Concomitant]
     Route: 048
     Dates: start: 20051111
  2. SUNITINIB MALATE [Suspect]
     Dosage: 37.5 MG, 1X/DAY
     Route: 048
     Dates: end: 20060818
  3. TRAMADOL HYDROCHLORIDE [Concomitant]
     Dosage: UNK
     Dates: start: 20040701
  4. MAALOXAN [Concomitant]
     Dosage: UNK
     Route: 048
     Dates: start: 20060131
  5. SUNITINIB MALATE [Suspect]
     Indication: METASTATIC RENAL CELL CARCINOMA
     Dosage: 37.5 MG, 1X/DAY
     Route: 048
     Dates: start: 20060117, end: 20060320
  6. VITAMIN B COMPLEX CAP [Concomitant]
     Route: 048
     Dates: start: 20060111
  7. TRAMADOL HCL [Concomitant]
     Dosage: 400 MG, UNK
     Route: 048
     Dates: start: 20040701
  8. BEPANTHEN ^ROCHE^ [Concomitant]
     Route: 061
     Dates: start: 20060818

REACTIONS (1)
  - HYDROCEPHALUS [None]
